FAERS Safety Report 9666762 (Version 1)
Quarter: 2013Q4

REPORT INFORMATION
  Report Type: Spontaneous
  Country: US (occurrence: US)
  Receive Date: 20131104
  Receipt Date: 20131104
  Transmission Date: 20140711
  Serious: No
  Sender: FDA-Public Use
  Company Number: US-BIOGENIDEC-2013BI087501

PATIENT
  Age: 42 Year
  Sex: Female
  Weight: 64 kg

DRUGS (7)
  1. TECFIDERA [Suspect]
     Indication: MULTIPLE SCLEROSIS
     Route: 048
     Dates: start: 20130825
  2. TECFIDERA [Suspect]
     Indication: MULTIPLE SCLEROSIS
     Route: 048
  3. VITAMIN D [Concomitant]
  4. NIACIN [Concomitant]
  5. ORTHO TRI-TAB CYCLEN [Concomitant]
  6. GABAPENTIN [Concomitant]
  7. TEMAZEPAM [Concomitant]

REACTIONS (3)
  - Emotional disorder [Recovered/Resolved]
  - Flushing [Recovered/Resolved]
  - Feeling hot [Recovered/Resolved]
